FAERS Safety Report 16830636 (Version 1)
Quarter: 2019Q3

REPORT INFORMATION
  Report Type: Spontaneous
  Country: TW (occurrence: TW)
  Receive Date: 20190920
  Receipt Date: 20190920
  Transmission Date: 20191005
  Serious: Yes (Death, Hospitalization, Other)
  Sender: FDA-Public Use
  Company Number: TW-ALEXION PHARMACEUTICALS INC.-A201914366

PATIENT
  Weight: .4 kg

DRUGS (1)
  1. SOLIRIS [Suspect]
     Active Substance: ECULIZUMAB
     Indication: PAROXYSMAL NOCTURNAL HAEMOGLOBINURIA
     Dosage: 900 MG, Q2W
     Route: 015
     Dates: end: 20180620

REACTIONS (3)
  - Death neonatal [Fatal]
  - Foetal distress syndrome [Fatal]
  - Premature baby [Fatal]

NARRATIVE: CASE EVENT DATE: 20181204
